FAERS Safety Report 25974628 (Version 2)
Quarter: 2025Q4

REPORT INFORMATION
  Report Type: Report from Study
  Country: EU (occurrence: EU)
  Receive Date: 20251029
  Receipt Date: 20251119
  Transmission Date: 20260118
  Serious: Yes (Death, Hospitalization)
  Sender: BAXTER
  Company Number: EU-BAXTER-2025BAX023117

PATIENT
  Age: 85 Year
  Sex: Male

DRUGS (7)
  1. OLIMEL E [Suspect]
     Active Substance: AMINO ACIDS\DEXTROSE\ELECTROLYTES NOS\SOYBEAN OIL
     Indication: Parenteral nutrition
     Dosage: 1000 ML
     Route: 042
     Dates: start: 20250825
  2. OLIMEL E [Suspect]
     Active Substance: AMINO ACIDS\DEXTROSE\ELECTROLYTES NOS\SOYBEAN OIL
     Dosage: 1500
     Route: 042
     Dates: start: 20250904, end: 20251113
  3. ELECTROLYTES NOS\MINERALS [Suspect]
     Active Substance: ELECTROLYTES NOS\MINERALS
     Indication: Parenteral nutrition
     Dosage: 10 ML
     Route: 042
     Dates: start: 20250825
  4. ELECTROLYTES NOS\MINERALS [Suspect]
     Active Substance: ELECTROLYTES NOS\MINERALS
     Dosage: 10 ML
     Route: 042
     Dates: start: 20250904, end: 20251113
  5. UNSPECIFIED INGREDIENT [Suspect]
     Active Substance: UNSPECIFIED INGREDIENT
     Route: 065
  6. VITAMINS [Concomitant]
     Active Substance: VITAMINS
     Indication: Parenteral nutrition
     Dosage: 932 MG
     Route: 042
     Dates: start: 20250825
  7. VITAMINS [Concomitant]
     Active Substance: VITAMINS
     Dosage: 932 MG
     Route: 042
     Dates: start: 20250904, end: 20251113

REACTIONS (5)
  - Organ failure [Fatal]
  - General physical health deterioration [Fatal]
  - Dyspnoea [Unknown]
  - Tremor [Unknown]
  - Tachycardia [Unknown]

NARRATIVE: CASE EVENT DATE: 20251023
